FAERS Safety Report 13906670 (Version 3)
Quarter: 2017Q4

REPORT INFORMATION
  Report Type: Spontaneous
  Country: US (occurrence: US)
  Receive Date: 20170825
  Receipt Date: 20171012
  Transmission Date: 20180320
  Serious: Yes (Hospitalization)
  Sender: FDA-Public Use
  Company Number: US-ACTELION-A-NJ2017-158528

PATIENT
  Age: 65 Year
  Sex: Female
  Weight: 29.48 kg

DRUGS (9)
  1. TRACLEER [Suspect]
     Active Substance: BOSENTAN
     Indication: PULMONARY ARTERIAL HYPERTENSION
     Dosage: 125 MG, BID
     Route: 048
  2. AUGMENTIN [Suspect]
     Active Substance: AMOXICILLIN\CLAVULANATE POTASSIUM
     Indication: RESPIRATORY TRACT INFECTION
  3. SYNTHROID [Concomitant]
     Active Substance: LEVOTHYROXINE SODIUM
  4. ATIVAN [Concomitant]
     Active Substance: LORAZEPAM
  5. AUGMENTIN [Suspect]
     Active Substance: AMOXICILLIN\CLAVULANATE POTASSIUM
     Indication: SINUSITIS
     Route: 065
  6. ELIQUIS [Concomitant]
     Active Substance: APIXABAN
  7. NIFEDIPINE. [Concomitant]
     Active Substance: NIFEDIPINE
  8. REVATIO [Concomitant]
     Active Substance: SILDENAFIL CITRATE
  9. LASIX [Concomitant]
     Active Substance: FUROSEMIDE

REACTIONS (5)
  - Dyspnoea exertional [Unknown]
  - Respiratory tract infection [Unknown]
  - Clostridium difficile infection [Recovered/Resolved]
  - Sinusitis [Unknown]
  - Dyspnoea [Unknown]

NARRATIVE: CASE EVENT DATE: 20170811
